FAERS Safety Report 25848233 (Version 1)
Quarter: 2025Q3

REPORT INFORMATION
  Report Type: Spontaneous
  Country: US (occurrence: US)
  Receive Date: 20250925
  Receipt Date: 20250925
  Transmission Date: 20251020
  Serious: No
  Sender: RK PHARMA
  Company Number: US-RK PHARMA, INC-20250400047

PATIENT

DRUGS (1)
  1. LEUPROLIDE ACETATE [Suspect]
     Active Substance: LEUPROLIDE ACETATE
     Indication: Infertility
     Route: 058

REACTIONS (2)
  - Product prescribing issue [Unknown]
  - Product container seal issue [Unknown]
